FAERS Safety Report 9899920 (Version 1)
Quarter: 2014Q1

REPORT INFORMATION
  Report Type: Not Available
  Country: US (occurrence: US)
  Receive Date: 20140214
  Receipt Date: 20140214
  Transmission Date: 20141002
  Serious: No
  Sender: FDA-Public Use
  Company Number: US-VIVUS-2013V1000808

PATIENT
  Age: 58 Year
  Sex: Male
  Weight: 82.63 kg

DRUGS (8)
  1. QSYMIA 3.75MG/23MG [Suspect]
     Indication: WEIGHT DECREASED
     Route: 048
     Dates: start: 201307
  2. LANTUS [Concomitant]
     Indication: DIABETES MELLITUS
     Dates: start: 2011
  3. HUMALOG [Concomitant]
     Indication: DIABETES MELLITUS
     Dates: start: 2011
  4. METFORMIN [Concomitant]
     Indication: DIABETES MELLITUS
     Route: 048
     Dates: start: 2006
  5. LOTREL [Concomitant]
     Indication: HYPERTENSION
     Dosage: 5/20MG
     Route: 048
     Dates: start: 2005
  6. LIPITOR [Concomitant]
     Indication: BLOOD CHOLESTEROL INCREASED
     Route: 048
     Dates: start: 2005
  7. ASPIRIN [Concomitant]
     Indication: PRODUCT USED FOR UNKNOWN INDICATION
     Route: 048
     Dates: start: 2005
  8. NASONEX [Concomitant]
     Indication: PRODUCT USED FOR UNKNOWN INDICATION
     Dosage: 2 PUFFS EACH NOSTRIL
     Route: 045
     Dates: start: 2005

REACTIONS (3)
  - Abdominal pain [Not Recovered/Not Resolved]
  - Aphagia [Not Recovered/Not Resolved]
  - Nausea [Not Recovered/Not Resolved]
